FAERS Safety Report 13701969 (Version 1)
Quarter: 2017Q2

REPORT INFORMATION
  Report Type: Spontaneous
  Country: US (occurrence: US)
  Receive Date: 20170629
  Receipt Date: 20170629
  Transmission Date: 20170830
  Serious: Yes (Other)
  Sender: FDA-Public Use
  Company Number: US-BAYER-2017-122208

PATIENT
  Age: 43 Year
  Sex: Female

DRUGS (1)
  1. MIRENA [Suspect]
     Active Substance: LEVONORGESTREL
     Indication: BLEEDING ANOVULATORY
     Dosage: 20 MCG/24HR, CONT
     Route: 015

REACTIONS (12)
  - Device breakage [None]
  - Drug ineffective for unapproved indication [None]
  - Embedded device [None]
  - Dysmenorrhoea [None]
  - Off label use of device [None]
  - Medical device monitoring error [None]
  - Uterine scar [None]
  - Invasive ductal breast carcinoma [None]
  - Pelvic pain [Recovered/Resolved]
  - Dyspareunia [None]
  - Uterine inflammation [None]
  - Hypomenorrhoea [None]
